FAERS Safety Report 22536667 (Version 1)
Quarter: 2023Q2

REPORT INFORMATION
  Report Type: Spontaneous
  Country: GA (occurrence: GA)
  Receive Date: 20230608
  Receipt Date: 20230608
  Transmission Date: 20230722
  Serious: Yes (Other)
  Sender: FDA-Public Use
  Company Number: GA-SUN PHARMACEUTICAL INDUSTRIES LTD-2023R1-393325

PATIENT
  Age: 61 Year
  Sex: Female

DRUGS (1)
  1. PREDNISONE [Suspect]
     Active Substance: PREDNISONE
     Indication: Bronchopulmonary aspergillosis allergic
     Dosage: UNK
     Route: 048

REACTIONS (2)
  - Glucose tolerance impaired [Unknown]
  - Treatment noncompliance [Unknown]
